FAERS Safety Report 4957186-X (Version None)
Quarter: 2006Q1

REPORT INFORMATION
  Report Type: 
  Country: None (occurrence: None)
  Receive Date: 20060329
  Receipt Date: 20060323
  Transmission Date: 20060701
  Serious: Yes (Hospitalization)
  Sender: FDA-Public Use
  Company Number: US-MERCK-0603USA04071

PATIENT
  Age: 82 Year
  Sex: Female
  Weight: 73 kg

DRUGS (9)
  1. VIOXX [Suspect]
     Indication: ARTHRITIS
     Route: 048
     Dates: start: 20001001, end: 20010101
  2. LIPITOR [Concomitant]
     Route: 065
  3. PAXIL [Concomitant]
     Route: 065
  4. DIOVAN [Concomitant]
     Route: 065
  5. SYNTHROID [Concomitant]
     Route: 065
  6. TENORMIN [Concomitant]
     Route: 065
  7. PREMARIN [Concomitant]
     Route: 065
  8. PROCARDIA [Concomitant]
     Route: 065
  9. ASPIRIN [Concomitant]
     Route: 065

REACTIONS (8)
  - CAROTID ARTERY DISEASE [None]
  - CEREBRAL ARTERY OCCLUSION [None]
  - CEREBROVASCULAR ACCIDENT [None]
  - DEEP VEIN THROMBOSIS [None]
  - PLEURAL EFFUSION [None]
  - PNEUMOPERITONEUM [None]
  - RASH MACULO-PAPULAR [None]
  - URINARY TRACT INFECTION [None]
